FAERS Safety Report 4592287-X (Version None)
Quarter: 2005Q1

REPORT INFORMATION
  Report Type: 
  Country: None (occurrence: None)
  Receive Date: 20050228
  Receipt Date: 20041118
  Transmission Date: 20050727
  Serious: No
  Sender: FDA-Public Use
  Company Number: US-BRISTOL-MYERS SQUIBB COMPANY-12769501

PATIENT
  Age: 84 Year
  Sex: Female

DRUGS (14)
  1. ABILIFY [Suspect]
     Indication: PARANOIA
     Dosage: INITIAL DOSE NOT REPORTED.
     Route: 048
     Dates: start: 20041021
  2. CAPTOPRIL [Concomitant]
  3. DETROL [Concomitant]
  4. CALCIUM GLUCONATE [Concomitant]
  5. MICRONASE [Concomitant]
  6. TOPAMAX [Concomitant]
  7. VITAMIN E [Concomitant]
  8. PLAVIX [Concomitant]
  9. CYLERT [Concomitant]
  10. MULTI-VITAMIN [Concomitant]
  11. ZOLOFT [Concomitant]
  12. DULCOLAX [Concomitant]
  13. SYNTHROID [Concomitant]
  14. FOSAMAX [Concomitant]

REACTIONS (1)
  - TREMOR [None]
